FAERS Safety Report 15884130 (Version 4)
Quarter: 2019Q2

REPORT INFORMATION
  Report Type: Spontaneous
  Country: PL (occurrence: PL)
  Receive Date: 20190129
  Receipt Date: 20190501
  Transmission Date: 20190711
  Serious: Yes (Hospitalization, Other)
  Sender: FDA-Public Use
  Company Number: PL-MYLANLABS-2019M1007305

PATIENT
  Age: 60 Year
  Sex: Male

DRUGS (6)
  1. PREDNISONE. [Suspect]
     Active Substance: PREDNISONE
     Indication: DRUG-INDUCED LIVER INJURY
     Dosage: 20 MILLIGRAM, QD (10 MG, BID)
     Route: 065
     Dates: start: 201105, end: 201106
  2. INSULIN HUMAN [Suspect]
     Active Substance: INSULIN HUMAN
     Indication: TYPE 2 DIABETES MELLITUS
     Dosage: 3 TIMES A DAY BEFORE MEALS DEPENDING ON GLYCEMIC LEVEL (APPROX. 10-12 IU)
     Dates: start: 201105
  3. PREDNISONE. [Suspect]
     Active Substance: PREDNISONE
     Dosage: PREDNISONE PRESCRIBED FOR ONE MONTH IN REDUCING DOSES
     Route: 065
     Dates: start: 201105, end: 201106
  4. INSULIN GLARGINE [Suspect]
     Active Substance: INSULIN GLARGINE
     Dosage: 3 TIMES A DAY BEFORE MEALS IN DOSES DEPENDING ON GLYCEMIC LEVEL (APPROX. 10-12 IU)
     Dates: start: 201105, end: 201106
  5. INSULIN GLARGINE [Suspect]
     Active Substance: INSULIN GLARGINE
     Indication: TYPE 2 DIABETES MELLITUS
     Dosage: 10-12 U BEFORE MEALS
     Route: 065
  6. INSULIN GLARGINE [Suspect]
     Active Substance: INSULIN GLARGINE
     Dosage: 10 U, QD (BEFORE SLEEP)
     Route: 065
     Dates: start: 201105, end: 201106

REACTIONS (5)
  - Drug-induced liver injury [Recovered/Resolved]
  - Jaundice [Recovered/Resolved]
  - Condition aggravated [Recovered/Resolved]
  - Drug interaction [Unknown]
  - Hyperglycaemia [Recovered/Resolved]

NARRATIVE: CASE EVENT DATE: 201106
